FAERS Safety Report 5806386-5 (Version None)
Quarter: 2008Q3

REPORT INFORMATION
  Report Type: 
  Country: None (occurrence: None)
  Receive Date: 20080710
  Receipt Date: 20080618
  Transmission Date: 20090109
  Serious: Yes (Hospitalization)
  Sender: FDA-Public Use
  Company Number: FR-PFIZER INC-2006091598

PATIENT
  Sex: Male
  Weight: 69 kg

DRUGS (3)
  1. SU-011,248 [Suspect]
     Indication: RENAL CANCER
     Route: 048
     Dates: start: 20060503, end: 20060516
  2. SU-011,248 [Suspect]
     Route: 048
     Dates: start: 20060517, end: 20060519
  3. SU-011,248 [Suspect]
     Route: 048
     Dates: start: 20060630, end: 20060721

REACTIONS (1)
  - PULMONARY EMBOLISM [None]
